FAERS Safety Report 5835665-0 (Version None)
Quarter: 2008Q3

REPORT INFORMATION
  Report Type: 
  Country: None (occurrence: None)
  Receive Date: 20080801
  Receipt Date: 20080721
  Transmission Date: 20090109
  Serious: Yes (Life-Threatening, Hospitalization)
  Sender: FDA-Public Use
  Company Number: US-JNJFOC-200803-02982

PATIENT
  Age: 65 Year
  Sex: Female
  Weight: 102.5 kg

DRUGS (23)
  1. DECITABINE (DECITABINE) LYOPHILIZED POWDER [Suspect]
     Indication: MYELODYSPLASTIC SYNDROME
     Dosage: 20 MG/M2, INTRAVENOUS
     Route: 042
     Dates: start: 20080221, end: 20080225
  2. ZOFRAN [Concomitant]
  3. VALTREX (VALACICLOVIR HYDROCHLORIDE) UNSPECIFIED [Concomitant]
  4. TRIAMTERENE (TRIAMTERENE) UNSPECIFIED [Concomitant]
  5. HYDROCHLOROTHIAZIDE (HYDROCHLOROTHIAZIDE) UNSPECIFIED [Concomitant]
  6. TOPROL (METOPROLOL SUCCINATE) UNSPECIFIED [Concomitant]
  7. PERIOGARD (DISPRAY NO 1) UNSPECIFIED [Concomitant]
  8. OMEPRAZOLE (OMEPRAZOLE) UNSPECIFIED [Concomitant]
  9. MAGNESIUM OXIDE (MAGNESIUM OXIDE) UNSPECIFIED [Concomitant]
  10. LUNESTA (HYPNOTICS AND SEDATIVES) UNSPECIFIED [Concomitant]
  11. LEVOTHYROXINE (LEVOTHYROXINE) UNSPECIFIED [Concomitant]
  12. LEVAQUIN [Concomitant]
  13. LASIX (FUROSEMIDE) UNSPECIFIED [Concomitant]
  14. HYDROCODONE (HYDROCODONE) UNSPECIFIED [Concomitant]
  15. TYLENOL (PARACETAMOL) UNSPECIFIED [Concomitant]
  16. DARVON (DEXTROPROPOXYPHENE HYDROCHLORIDE) UNSPECIFIED [Concomitant]
  17. CYMBALTA (ANTIDEPRESSANTS) UNSPECIFIED [Concomitant]
  18. CELEBREX (CELECOXIB) UNSPECIFIED [Concomitant]
  19. AMITRIPTYLINE (AMITRIPTYLINE) UNSPECIFIED [Concomitant]
  20. ALLOPURINOL (ALLOPURINOL) UNSPECIFIED [Concomitant]
  21. ALBUTEROL (SALBUTAMOL) UNSPECIFIED [Concomitant]
  22. ADVAIR (SERETIDE MITE) UNSPECIFIED [Concomitant]
  23. CLARITIN [Concomitant]

REACTIONS (50)
  - ABASIA [None]
  - ANAL DILATATION [None]
  - APHASIA [None]
  - ARTHRALGIA [None]
  - ASTHENIA [None]
  - ATELECTASIS [None]
  - ATRIAL FIBRILLATION [None]
  - BACILLUS INFECTION [None]
  - BACTERAEMIA [None]
  - BLOOD BILIRUBIN INCREASED [None]
  - BLOOD CULTURE POSITIVE [None]
  - BLOOD SODIUM DECREASED [None]
  - BONE MARROW FAILURE [None]
  - CARDIAC MURMUR [None]
  - CARDIAC VALVE VEGETATION [None]
  - CONFUSIONAL STATE [None]
  - CONSTIPATION [None]
  - DECUBITUS ULCER [None]
  - DISEASE PROGRESSION [None]
  - FLUID OVERLOAD [None]
  - GASTROINTESTINAL HAEMORRHAGE [None]
  - HAEMODIALYSIS [None]
  - HEADACHE [None]
  - HYPOTENSION [None]
  - LETHARGY [None]
  - LOBAR PNEUMONIA [None]
  - MEGACOLON [None]
  - MENTAL STATUS CHANGES [None]
  - MITRAL VALVE CALCIFICATION [None]
  - MUSCLE ABSCESS [None]
  - OSTEOMYELITIS ACUTE [None]
  - PAIN IN EXTREMITY [None]
  - PSEUDOMONAL SEPSIS [None]
  - PULMONARY OEDEMA [None]
  - PYREXIA [None]
  - RECTAL HAEMORRHAGE [None]
  - RENAL FAILURE ACUTE [None]
  - RESPIRATORY DISTRESS [None]
  - RESPIRATORY FAILURE [None]
  - RESPIRATORY MONILIASIS [None]
  - RESPIRATORY TRACT INFECTION FUNGAL [None]
  - RETINAL DETACHMENT [None]
  - SPINAL OSTEOARTHRITIS [None]
  - STAPHYLOCOCCAL INFECTION [None]
  - STAPHYLOCOCCAL SEPSIS [None]
  - TONGUE COATED [None]
  - TREMOR [None]
  - VENTRICULAR EXTRASYSTOLES [None]
  - VISUAL ACUITY REDUCED [None]
  - WHITE BLOOD CELL COUNT DECREASED [None]
